FAERS Safety Report 5899588-3 (Version None)
Quarter: 2008Q3

REPORT INFORMATION
  Report Type: 
  Country: None (occurrence: None)
  Receive Date: 20080926
  Receipt Date: 20080919
  Transmission Date: 20090109
  Serious: Yes (Other)
  Sender: FDA-Public Use
  Company Number: PHHY2008JP19992

PATIENT
  Age: 1 Year
  Sex: Male

DRUGS (2)
  1. ZADITEN [Suspect]
     Dosage: UNK
     Route: 048
     Dates: start: 20080829, end: 20080901
  2. STADERM [Concomitant]
     Route: 061

REACTIONS (4)
  - ERYTHEMA MULTIFORME [None]
  - EYE SWELLING [None]
  - PRURITUS GENERALISED [None]
  - STEVENS-JOHNSON SYNDROME [None]
